FAERS Safety Report 5347867-0 (Version None)
Quarter: 2007Q2

REPORT INFORMATION
  Report Type: 
  Country: None (occurrence: None)
  Receive Date: 20070606
  Receipt Date: 20070529
  Transmission Date: 20071010
  Serious: Yes (Hospitalization)
  Sender: FDA-Public Use
  Company Number: JP-MERCK-0705USA05714

PATIENT
  Sex: Female

DRUGS (4)
  1. ZOCOR [Suspect]
     Indication: HYPERLIPIDAEMIA
     Route: 048
     Dates: start: 20021101
  2. GLYCYRON [Concomitant]
     Route: 065
  3. URSODIOL [Concomitant]
     Route: 065
  4. BEZATOL SR [Concomitant]
     Route: 048

REACTIONS (1)
  - AUTOIMMUNE HEPATITIS [None]
